FAERS Safety Report 9935148 (Version 1)
Quarter: 2014Q1

REPORT INFORMATION
  Report Type: Spontaneous
  Country: US (occurrence: US)
  Receive Date: 20140228
  Receipt Date: 20140228
  Transmission Date: 20141002
  Serious: Yes (Other)
  Sender: FDA-Public Use
  Company Number: US-PFIZER INC-2014056991

PATIENT
  Age: 54 Year
  Sex: Female

DRUGS (1)
  1. XALKORI [Suspect]
     Indication: LUNG NEOPLASM MALIGNANT
     Dosage: 250 MG (ONE CAPSULE), 2X/DAY
     Dates: start: 20131114

REACTIONS (4)
  - Convulsion [Not Recovered/Not Resolved]
  - Tremor [Unknown]
  - Syncope [Unknown]
  - Dizziness [Unknown]
